FAERS Safety Report 20808444 (Version 1)
Quarter: 2022Q2

REPORT INFORMATION
  Report Type: Spontaneous
  Country: US (occurrence: None)
  Receive Date: 20220510
  Receipt Date: 20220510
  Transmission Date: 20220721
  Serious: Yes (Hospitalization, Other)
  Sender: FDA-Public Use
  Company Number: US-MICRO LABS LIMITED-ML2022-01968

PATIENT
  Age: 62 Year
  Sex: Female

DRUGS (2)
  1. LOSARTAN [Suspect]
     Active Substance: LOSARTAN
     Dosage: 30 50-MG LOSARTAN TABLETS
  2. INSULIN NOS [Suspect]
     Active Substance: INSULIN NOS
     Dosage: 2.5 10-ML VIALS OF INSULIN

REACTIONS (2)
  - Intentional overdose [Unknown]
  - Suicide attempt [Unknown]
